FAERS Safety Report 22179572 (Version 2)
Quarter: 2023Q2

REPORT INFORMATION
  Report Type: Spontaneous
  Country: US (occurrence: US)
  Receive Date: 20230406
  Receipt Date: 20230501
  Transmission Date: 20230722
  Serious: No
  Sender: FDA-Public Use
  Company Number: US-SA-SAC20230404001475

PATIENT
  Age: 53 Year
  Sex: Female

DRUGS (1)
  1. DUPIXENT [Suspect]
     Active Substance: DUPILUMAB
     Indication: Dermatitis atopic
     Dosage: 300 MG OTHER
     Route: 058
     Dates: start: 202301, end: 202303

REACTIONS (6)
  - Ocular hyperaemia [Unknown]
  - Conjunctivitis [Unknown]
  - Eye discharge [Unknown]
  - Eyelid margin crusting [Unknown]
  - Dry eye [Unknown]
  - Eye irritation [Unknown]
